FAERS Safety Report 6725266-4 (Version None)
Quarter: 2010Q2

REPORT INFORMATION
  Report Type: 
  Country: None (occurrence: None)
  Receive Date: 20100513
  Receipt Date: 20100513
  Transmission Date: 20101027
  Serious: Yes (Death)
  Sender: FDA-Public Use
  Company Number: None

PATIENT
  Age: 84 Year
  Sex: Female
  Weight: 54.4316 kg

DRUGS (4)
  1. EVISTA [Suspect]
     Indication: OSTEOPOROSIS
     Dosage: 60 MG DAILY ORAL 047
     Route: 048
     Dates: start: 20071101, end: 20100201
  2. VERAPAMIL [Concomitant]
  3. TRIAMTERENE [Concomitant]
  4. FOSAMAX PLUS D [Concomitant]

REACTIONS (1)
  - PULMONARY EMBOLISM [None]
